FAERS Safety Report 4295159-3 (Version None)
Quarter: 2004Q1

REPORT INFORMATION
  Report Type: 
  Country: None (occurrence: None)
  Receive Date: 20040211
  Receipt Date: 20040126
  Transmission Date: 20041129
  Serious: Yes (Death, Hospitalization)
  Sender: FDA-Public Use
  Company Number: 7354

PATIENT
  Age: 74 Year
  Sex: Male

DRUGS (8)
  1. METHOTREXATE [Suspect]
     Indication: RHEUMATOID ARTHRITIS
     Dosage: 4 MG WEEKLY, PO
     Route: 048
     Dates: start: 20010628, end: 20030601
  2. PREDNISOLONE [Suspect]
     Indication: RHEUMATOID ARTHRITIS
     Dosage: 7 MG, PO
     Route: 048
     Dates: start: 20010101, end: 20030622
  3. BUCILLAMINE [Suspect]
     Indication: RHEUMATOID ARTHRITIS
     Dosage: 100 MG PO
     Route: 048
     Dates: start: 20010401, end: 20030622
  4. ETIZOLAM [Concomitant]
  5. LIMAPROST [Concomitant]
  6. DICLOFENAC SODIUM [Concomitant]
  7. MISOPROSTOL [Concomitant]
  8. CEFACLOR [Concomitant]

REACTIONS (13)
  - ANOREXIA [None]
  - BACK PAIN [None]
  - GENERALISED OEDEMA [None]
  - HYPOXIA [None]
  - JAUNDICE [None]
  - NAIL AVULSION [None]
  - PAIN [None]
  - PANCYTOPENIA [None]
  - PNEUMONIA [None]
  - SKIN ULCER [None]
  - SYSTEMIC INFLAMMATORY RESPONSE SYNDROME [None]
  - TREATMENT NONCOMPLIANCE [None]
  - VOMITING [None]
